FAERS Safety Report 8843485 (Version 2)
Quarter: 2012Q4

REPORT INFORMATION
  Report Type: 
  Country: FR (occurrence: FR)
  Receive Date: 20121016
  Receipt Date: 20121120
  Transmission Date: 20130627
  Serious: Yes (Hospitalization, Other)
  Sender: FDA-Public Use
  Company Number: FR-GILEAD-2012-0062543

PATIENT
  Age: 34 Year
  Sex: Female

DRUGS (4)
  1. TRUVADA [Suspect]
     Indication: HIV INFECTION
     Dosage: 1 DF, UNK
     Route: 048
     Dates: start: 20120914, end: 201209
  2. TRUVADA [Suspect]
     Dosage: 1 DF, UNK
     Route: 048
     Dates: start: 201209, end: 20120929
  3. KALETRA [Suspect]
     Indication: HIV INFECTION
     Dosage: 4 DF, UNK
     Route: 048
     Dates: start: 20120914, end: 201209
  4. KALETRA [Suspect]
     Dosage: 4 DF, UNK
     Route: 048
     Dates: start: 201209, end: 20120929

REACTIONS (3)
  - Pyrexia [Recovered/Resolved]
  - Tenosynovitis [Not Recovered/Not Resolved]
  - Rash [Not Recovered/Not Resolved]
